FAERS Safety Report 7613551-3 (Version None)
Quarter: 2011Q3

REPORT INFORMATION
  Report Type: 
  Country: None (occurrence: None)
  Receive Date: 20110708
  Receipt Date: 20110630
  Transmission Date: 20111222
  Serious: Yes (Other)
  Sender: FDA-Public Use
  Company Number: 2011SP030834

PATIENT
  Age: 66 Year
  Sex: Female

DRUGS (1)
  1. POSACONAZOLE [Suspect]
     Indication: ANTIFUNGAL PROPHYLAXIS
     Dosage: 400 MG;BID;PO
     Route: 048

REACTIONS (1)
  - PNEUMONIA FUNGAL [None]
